FAERS Safety Report 5486098-0 (Version None)
Quarter: 2007Q4

REPORT INFORMATION
  Report Type: 
  Country: None (occurrence: None)
  Receive Date: 20071015
  Receipt Date: 20071003
  Transmission Date: 20080405
  Serious: Yes (Disabling)
  Sender: FDA-Public Use
  Company Number: GB-PFIZER INC-2007084397

PATIENT
  Age: 45 Year

DRUGS (2)
  1. CHAMPIX [Suspect]
     Indication: SMOKING CESSATION THERAPY
     Route: 048
     Dates: start: 20070118, end: 20070123
  2. ROSUVASTATIN [Concomitant]

REACTIONS (2)
  - ANXIETY [None]
  - PANIC ATTACK [None]
